FAERS Safety Report 4820863-5 (Version None)
Quarter: 2005Q4

REPORT INFORMATION
  Report Type: 
  Country: None (occurrence: None)
  Receive Date: 20051103
  Receipt Date: 20051101
  Transmission Date: 20060501
  Serious: Yes (Disabling)
  Sender: FDA-Public Use
  Company Number: TPG2005A00436

PATIENT
  Age: 85 Year
  Sex: Male

DRUGS (1)
  1. LEUPROLIDE ACETATE [Suspect]
     Indication: PROSTATE CANCER
     Dosage: 11.25 MG (11.25 MG, 1 IN 3M)
     Route: 058
     Dates: start: 20050801

REACTIONS (9)
  - ANOREXIA [None]
  - BLINDNESS [None]
  - DEPRESSION [None]
  - FATIGUE [None]
  - HYPERHIDROSIS [None]
  - RETINAL INJURY [None]
  - RETINAL VASCULAR THROMBOSIS [None]
  - SLEEP DISORDER [None]
  - VISUAL ACUITY REDUCED [None]
